FAERS Safety Report 24158266 (Version 7)
Quarter: 2024Q4

REPORT INFORMATION
  Report Type: Spontaneous
  Country: PT (occurrence: PT)
  Receive Date: 20240731
  Receipt Date: 20241106
  Transmission Date: 20250115
  Serious: Yes (Hospitalization, Other)
  Sender: ORGANON
  Company Number: None

PATIENT
  Age: 81 Year
  Sex: Male

DRUGS (7)
  1. MOMETASONE FUROATE [Suspect]
     Active Substance: MOMETASONE FUROATE
     Indication: Fungal infection
     Dosage: UNK
     Route: 061
  2. MOMETASONE FUROATE [Suspect]
     Active Substance: MOMETASONE FUROATE
     Indication: Acarodermatitis
     Dosage: UNK
     Route: 065
  3. TERBINAFINE [Suspect]
     Active Substance: TERBINAFINE\TERBINAFINE HYDROCHLORIDE
     Indication: Fungal infection
     Dosage: UNK
     Route: 061
  4. TERBINAFINE [Suspect]
     Active Substance: TERBINAFINE\TERBINAFINE HYDROCHLORIDE
     Indication: Acarodermatitis
     Dosage: UNK
     Route: 065
  5. BENZYL BENZOATE [Concomitant]
     Active Substance: BENZYL BENZOATE
     Indication: Fungal infection
     Dosage: UNK
     Route: 061
  6. BENZYL BENZOATE [Concomitant]
     Active Substance: BENZYL BENZOATE
     Indication: Acarodermatitis
     Dosage: UNK
     Route: 065
  7. BENZYL BENZOATE [Concomitant]
     Active Substance: BENZYL BENZOATE
     Dosage: UNK
     Route: 065

REACTIONS (2)
  - Toxic epidermal necrolysis [Recovered/Resolved]
  - Toxic skin eruption [Unknown]
